FAERS Safety Report 8488851-8 (Version None)
Quarter: 2012Q3

REPORT INFORMATION
  Report Type: 
  Country: None (occurrence: None)
  Receive Date: 20120705
  Receipt Date: 20120628
  Transmission Date: 20120928
  Serious: Yes (Hospitalization, Other)
  Sender: FDA-Public Use
  Company Number: ES-ROCHE-1066396

PATIENT
  Sex: Male
  Weight: 76 kg

DRUGS (3)
  1. PEGASYS [Suspect]
     Indication: HEPATITIS C
     Dates: start: 20110823, end: 20120320
  2. BLINDED ALISPORIVIR [Suspect]
     Indication: HEPATITIS C
     Route: 048
     Dates: start: 20110823, end: 20120325
  3. COPEGUS [Suspect]
     Indication: HEPATITIS C
     Dates: start: 20110823, end: 20120325

REACTIONS (7)
  - HYPOPITUITARISM [None]
  - ANAEMIA [None]
  - CONFUSIONAL STATE [None]
  - THROMBOCYTOPENIA [None]
  - HYPONATRAEMIA [None]
  - OTITIS MEDIA VIRAL [None]
  - NEUTROPENIA [None]
